FAERS Safety Report 6052900-7 (Version None)
Quarter: 2009Q1

REPORT INFORMATION
  Report Type: 
  Country: None (occurrence: None)
  Receive Date: 20090127
  Receipt Date: 20081111
  Transmission Date: 20090719
  Serious: No
  Sender: FDA-Public Use
  Company Number: US-ABBOTT-08P-163-0462055-00

PATIENT
  Sex: Male
  Weight: 112.14 kg

DRUGS (3)
  1. LUPRON DEPOT [Suspect]
     Indication: LIBIDO DECREASED
     Route: 030
     Dates: start: 20070101, end: 20080301
  2. PSYCHOTROPIC MEDICINE [Concomitant]
     Indication: BIPOLAR DISORDER
     Route: 048
  3. METFORMIN HCL [Concomitant]
     Indication: GLUCOSE TOLERANCE IMPAIRED
     Route: 048

REACTIONS (4)
  - EXCESSIVE MASTURBATION [None]
  - LIBIDO INCREASED [None]
  - NAUSEA [None]
  - VOMITING [None]
